FAERS Safety Report 4621210-4 (Version None)
Quarter: 2005Q1

REPORT INFORMATION
  Report Type: 
  Country: None (occurrence: None)
  Receive Date: 20050328
  Receipt Date: 20050112
  Transmission Date: 20050727
  Serious: Yes (Hospitalization)
  Sender: FDA-Public Use
  Company Number: 2005015418

PATIENT
  Age: 64 Year
  Sex: Male

DRUGS (7)
  1. SOLU-MEDROL [Suspect]
     Indication: LARYNGEAL CANCER
     Dates: start: 20040622, end: 20040626
  2. CISPLATIN [Suspect]
     Indication: LARYNGEAL CANCER
     Dosage: 220 MG (220 MG, 1 IN 1 D)
     Dates: start: 20040622, end: 20040622
  3. METOCLOPRAMIDE [Suspect]
     Indication: ILL-DEFINED DISORDER
     Dates: start: 20040622, end: 20040626
  4. FLUOROURACIL [Suspect]
     Indication: LARYNGEAL CANCER
     Dosage: 2.2 GRAM (2.2 GRAM, 1 IN 1
     Dates: start: 20040622, end: 20040626
  5. ONDANSETRON HYDROCHLORIDE [Suspect]
     Indication: LARYNGEAL CANCER
     Dates: start: 20040622, end: 20040626
  6. OMEPRAZOLE [Concomitant]
  7. ZOLPIDEM TARTRATE [Concomitant]

REACTIONS (6)
  - ARTERIAL THROMBOSIS LIMB [None]
  - INJECTION SITE ERYTHEMA [None]
  - INJECTION SITE THROMBOSIS [None]
  - NEUTROPENIA [None]
  - PHLEBOTHROMBOSIS [None]
  - RENAL FAILURE [None]
